FAERS Safety Report 24771795 (Version 1)
Quarter: 2024Q4

REPORT INFORMATION
  Report Type: Spontaneous
  Country: GB (occurrence: GB)
  Receive Date: 20241224
  Receipt Date: 20241224
  Transmission Date: 20250114
  Serious: Yes (Hospitalization, Other)
  Sender: CHATTEM
  Company Number: GB-MHRA-EMIS-7063-2578ef82-7a65-4346-a9c7-ef697863364c

PATIENT
  Age: 72 Year
  Sex: Male
  Weight: 72 kg

DRUGS (3)
  1. FEXOFENADINE [Suspect]
     Active Substance: FEXOFENADINE HYDROCHLORIDE
     Indication: Pruritus
     Dosage: ONE TO BE TAKEN EACH DAY FOR PRURITIS
     Dates: start: 20241112, end: 20241127
  2. Adjuvanted quadrivalent influenza vaccine (surface antigen, inactivate [Concomitant]
     Indication: Product used for unknown indication
     Dosage: INTRAMUSCULAR?SUSPENSION FOR INJECTION 0.5ML PRE-FILLED SYRINGES
     Route: 030
     Dates: start: 20241005, end: 20241005
  3. Spikevax JN.1 COVID-19 mRNA Vaccine 0.1mg/ml dispersion for injection [Concomitant]
     Indication: Product used for unknown indication
     Dosage: 0.5 ML INTRAMUSCULAR
     Route: 030
     Dates: start: 20241018, end: 20241018

REACTIONS (1)
  - Epilepsy [Recovering/Resolving]

NARRATIVE: CASE EVENT DATE: 20241127
